FAERS Safety Report 23909577 (Version 1)
Quarter: 2024Q2

REPORT INFORMATION
  Report Type: Spontaneous
  Country: GB (occurrence: GB)
  Receive Date: 20240528
  Receipt Date: 20240528
  Transmission Date: 20240715
  Serious: Yes (Other)
  Sender: FDA-Public Use
  Company Number: None

PATIENT
  Age: 37 Year
  Sex: Female
  Weight: 88 kg

DRUGS (5)
  1. HYDROCORTISONE [Suspect]
     Active Substance: HYDROCORTISONE
     Route: 065
  2. TRANEXAMIC ACID [Concomitant]
     Active Substance: TRANEXAMIC ACID
     Dosage: TIME INTERVAL: 0.33333333 DAYS: FOR 4 DAYS EACH CYCL
     Dates: start: 20240321, end: 20240326
  3. PHENERGAN [Concomitant]
     Active Substance: PROMETHAZINE HYDROCHLORIDE
     Dosage: TAKE ONE OR TWO AT NIGHT
  4. KETOCONAZOLE [Concomitant]
     Active Substance: KETOCONAZOLE
     Dosage: APPLY TO BODY. LATHER, LEAVE FOR 3,
  5. ACETAMINOPHEN\CODEINE PHOSPHATE [Concomitant]
     Active Substance: ACETAMINOPHEN\CODEINE PHOSPHATE
     Indication: Pain
     Dosage: TAKE 1 OR 2  WHEN NEEDED 2 TIMES/DAY,
     Dates: start: 20240321, end: 20240402

REACTIONS (2)
  - Skin burning sensation [Recovered/Resolved]
  - Paraesthesia oral [Unknown]
